FAERS Safety Report 5316891-6 (Version None)
Quarter: 2007Q2

REPORT INFORMATION
  Report Type: 
  Country: None (occurrence: None)
  Receive Date: 20070504
  Receipt Date: 20070424
  Transmission Date: 20071010
  Serious: Yes (Disabling)
  Sender: FDA-Public Use
  Company Number: FR-GLAXOSMITHKLINE-B0462690A

PATIENT
  Age: 69 Year
  Sex: Female
  Weight: 70 kg

DRUGS (2)
  1. LAMICTAL [Suspect]
     Indication: EPILEPSY
     Dosage: 25MG THREE TIMES PER DAY
     Route: 048
     Dates: start: 20061001, end: 20070101
  2. ALPRAZOLAM [Concomitant]
     Indication: ANXIETY
     Dosage: .25MG PER DAY
     Route: 048
     Dates: start: 20061001, end: 20061201

REACTIONS (3)
  - ANOREXIA [None]
  - DYSPEPSIA [None]
  - WEIGHT DECREASED [None]
